FAERS Safety Report 16797775 (Version 1)
Quarter: 2019Q3

REPORT INFORMATION
  Report Type: Spontaneous
  Country: JP (occurrence: JP)
  Receive Date: 20190912
  Receipt Date: 20190912
  Transmission Date: 20191005
  Serious: Yes (Hospitalization, Other)
  Sender: FDA-Public Use
  Company Number: JP-AMEL-2019-05659AA

PATIENT
  Age: 59 Year
  Sex: Female

DRUGS (9)
  1. QUETIAPINE 25 MG TABLET [Suspect]
     Active Substance: QUETIAPINE FUMARATE
     Indication: AGGRESSION
  2. ARIPIPRAZOLE. [Concomitant]
     Active Substance: ARIPIPRAZOLE
     Indication: INTENTIONAL SELF-INJURY
  3. ARIPIPRAZOLE. [Concomitant]
     Active Substance: ARIPIPRAZOLE
     Indication: AGGRESSION
  4. QUETIAPINE 25 MG TABLET [Suspect]
     Active Substance: QUETIAPINE FUMARATE
     Indication: PSYCHOMOTOR HYPERACTIVITY
     Dosage: 08 DOSAGE FORM, QD
     Route: 048
     Dates: start: 2016
  5. QUETIAPINE 25 MG TABLET [Suspect]
     Active Substance: QUETIAPINE FUMARATE
     Indication: INTENTIONAL SELF-INJURY
     Dosage: 4 DOSAGE FORM, QD
     Route: 048
  6. ARIPIPRAZOLE. [Concomitant]
     Active Substance: ARIPIPRAZOLE
     Indication: PSYCHOMOTOR HYPERACTIVITY
     Dosage: 1 MILLIGRAM, QD
     Route: 048
  7. YOKUKANSAN [Concomitant]
     Active Substance: HERBALS
     Indication: PSYCHOMOTOR HYPERACTIVITY
     Dosage: 5 GRAM, QD
     Route: 048
  8. YOKUKANSAN [Concomitant]
     Active Substance: HERBALS
     Indication: AGGRESSION
  9. YOKUKANSAN [Concomitant]
     Active Substance: HERBALS
     Indication: INTENTIONAL SELF-INJURY

REACTIONS (4)
  - Off label use [Unknown]
  - Urinary retention [Unknown]
  - Haematuria [Unknown]
  - Hydronephrosis [Unknown]

NARRATIVE: CASE EVENT DATE: 20190816
